FAERS Safety Report 20910369 (Version 1)
Quarter: 2022Q2

REPORT INFORMATION
  Report Type: Spontaneous
  Country: FR (occurrence: FR)
  Receive Date: 20220603
  Receipt Date: 20220603
  Transmission Date: 20220720
  Serious: Yes (Life-Threatening, Hospitalization, Other)
  Sender: FDA-Public Use
  Company Number: None

PATIENT
  Age: 25 Year
  Sex: Female

DRUGS (4)
  1. PROPOFOL [Suspect]
     Active Substance: PROPOFOL
     Indication: Anaesthesia
     Dosage: UNK
     Route: 042
     Dates: start: 20220513, end: 20220513
  2. REMIFENTANIL [Suspect]
     Active Substance: REMIFENTANIL
     Indication: Anaesthesia
     Dosage: UNK
     Route: 042
     Dates: start: 20220513, end: 20220513
  3. ROCURONIUM [Suspect]
     Active Substance: ROCURONIUM BROMIDE
     Indication: Anaesthesia
     Dosage: UNK
     Route: 042
     Dates: start: 20220513, end: 20220513
  4. LIDOCAINE [Suspect]
     Active Substance: LIDOCAINE
     Indication: Anaesthesia
     Dosage: UNK
     Dates: start: 20220513, end: 20220513

REACTIONS (1)
  - Anaphylactic shock [Recovered/Resolved]

NARRATIVE: CASE EVENT DATE: 20220513
